FAERS Safety Report 25388250 (Version 1)
Quarter: 2025Q2

REPORT INFORMATION
  Report Type: Spontaneous
  Country: AR (occurrence: AR)
  Receive Date: 20250603
  Receipt Date: 20250603
  Transmission Date: 20250717
  Serious: No
  Sender: SANDOZ
  Company Number: AR-SANDOZ-SDZ2025AR038238

PATIENT
  Age: 66 Year
  Sex: Female

DRUGS (1)
  1. HYRIMOZ [Suspect]
     Active Substance: ADALIMUMAB-ADAZ
     Indication: Rheumatoid arthritis
     Dosage: 40 MG, BID,40MG /0.8ML PENS PREFILLED X 2
     Route: 058
     Dates: start: 20250523

REACTIONS (1)
  - Injection site bruising [Unknown]

NARRATIVE: CASE EVENT DATE: 20250523
